FAERS Safety Report 12274713 (Version 3)
Quarter: 2021Q2

REPORT INFORMATION
  Report Type: Spontaneous
  Country: US (occurrence: US)
  Receive Date: 20160415
  Receipt Date: 20210413
  Transmission Date: 20210716
  Serious: No
  Sender: FDA-Public Use
  Company Number: US-ALLERGAN-1508454US

PATIENT
  Age: 63 Year
  Sex: Female

DRUGS (3)
  1. LUMIGAN [Suspect]
     Active Substance: BIMATOPROST
     Indication: INTRAOCULAR PRESSURE INCREASED
     Dosage: UNK
     Route: 047
     Dates: start: 201408, end: 2015
  2. LUMIGAN [Suspect]
     Active Substance: BIMATOPROST
     Indication: OPTIC NERVE INJURY
     Dosage: UNK
     Route: 047
     Dates: start: 20150510
  3. LUMIGAN [Suspect]
     Active Substance: BIMATOPROST
     Dosage: 1 GTT, QD
     Route: 047
     Dates: start: 201603, end: 2016

REACTIONS (6)
  - Chalazion [Recovered/Resolved]
  - Off label use [Unknown]
  - Eye pain [Recovered/Resolved]
  - Nasal congestion [Recovered/Resolved]
  - Eye swelling [Recovered/Resolved]
  - Paraesthesia [Recovered/Resolved]

NARRATIVE: CASE EVENT DATE: 20150422
